FAERS Safety Report 24459311 (Version 1)
Quarter: 2024Q4

REPORT INFORMATION
  Report Type: Other
  Country: NL (occurrence: NL)
  Receive Date: 20241018
  Receipt Date: 20241018
  Transmission Date: 20250114
  Serious: Yes (Death)
  Sender: ANI
  Company Number: NL-ANIPHARMA-012527

PATIENT
  Age: 36 Year
  Sex: Male

DRUGS (14)
  1. CYCLOPHOSPHAMIDE [Suspect]
     Active Substance: CYCLOPHOSPHAMIDE
     Indication: Burkitt^s lymphoma stage IV
  2. RITUXIMAB [Concomitant]
     Active Substance: RITUXIMAB
     Indication: Burkitt^s lymphoma stage IV
  3. DOXORUBICIN [Concomitant]
     Active Substance: DOXORUBICIN
     Indication: Burkitt^s lymphoma stage IV
  4. VINCRISTINE [Concomitant]
     Active Substance: VINCRISTINE
     Indication: Burkitt^s lymphoma stage IV
  5. PREDNISONE [Concomitant]
     Active Substance: PREDNISONE
     Indication: Burkitt^s lymphoma stage IV
  6. METHOTREXATE [Concomitant]
     Active Substance: METHOTREXATE
     Indication: Burkitt^s lymphoma stage IV
  7. IFOSFAMIDE [Concomitant]
     Active Substance: IFOSFAMIDE
     Indication: Burkitt^s lymphoma stage IV
  8. ETOPOSIDE [Concomitant]
     Active Substance: ETOPOSIDE
     Indication: Burkitt^s lymphoma stage IV
  9. CYTARABINE [Concomitant]
     Active Substance: CYTARABINE
     Indication: Burkitt^s lymphoma stage IV
  10. CISPLATIN [Concomitant]
     Active Substance: CISPLATIN
     Indication: Burkitt^s lymphoma stage IV
  11. DEXAMETHASONE [Concomitant]
     Active Substance: DEXAMETHASONE
     Indication: Burkitt^s lymphoma stage IV
  12. GEMCITABINE [Concomitant]
     Active Substance: GEMCITABINE
     Indication: Burkitt^s lymphoma stage IV
  13. INOTUZUMAB OZOGAMICIN [Concomitant]
     Active Substance: INOTUZUMAB OZOGAMICIN
     Indication: Burkitt^s lymphoma stage IV
  14. IDELALISIB [Concomitant]
     Active Substance: IDELALISIB
     Indication: Burkitt^s lymphoma stage IV

REACTIONS (1)
  - Therapeutic product effect incomplete [Fatal]
